FAERS Safety Report 6754411-X (Version None)
Quarter: 2010Q2

REPORT INFORMATION
  Report Type: 
  Country: None (occurrence: None)
  Receive Date: 20100601
  Receipt Date: 20100514
  Transmission Date: 20101027
  Serious: Yes (Hospitalization)
  Sender: FDA-Public Use
  Company Number: 2010000272

PATIENT
  Age: 74 Year
  Sex: Female

DRUGS (12)
  1. TARCEVA [Suspect]
     Indication: LUNG ADENOCARCINOMA
     Dosage: (100 MG, QD), ORAL; ORAL
     Route: 048
     Dates: start: 20091124, end: 20091221
  2. TARCEVA [Suspect]
     Indication: LUNG ADENOCARCINOMA
     Dosage: (100 MG, QD), ORAL; ORAL
     Route: 048
     Dates: start: 20100505
  3. OXYCONTIN [Concomitant]
  4. FAMOTIDINE [Concomitant]
  5. LOXOPROFEN (LOXOPROFEN) [Concomitant]
  6. ZOLPIDEM TARTRATE [Concomitant]
  7. MAGNESIUM OXIDE (MAGNESIUM OXIDE) [Concomitant]
  8. VALSARTAN [Concomitant]
  9. DOXAZOSIN MESYLATE [Concomitant]
  10. BISOPROLOL FUMARATE [Concomitant]
  11. AMLODIPINE [Concomitant]
  12. ZOMETA [Concomitant]

REACTIONS (1)
  - CHOLELITHIASIS [None]
